FAERS Safety Report 20213675 (Version 1)
Quarter: 2021Q4

REPORT INFORMATION
  Report Type: Spontaneous
  Country: CN (occurrence: CN)
  Receive Date: 20211221
  Receipt Date: 20211221
  Transmission Date: 20220304
  Serious: Yes (Hospitalization, Other)
  Sender: FDA-Public Use
  Company Number: CN-NAPPMUNDI-GBR-2021-0093515

PATIENT
  Age: 70 Year
  Sex: Male

DRUGS (1)
  1. OXYCONTIN [Suspect]
     Active Substance: OXYCODONE HYDROCHLORIDE
     Indication: Pain
     Dosage: 20 MG, Q12H (STRENGTH 10MG)
     Route: 048
     Dates: start: 20211206, end: 20211207

REACTIONS (10)
  - Coma [Recovering/Resolving]
  - Toxicity to various agents [Recovering/Resolving]
  - Unresponsive to stimuli [Recovering/Resolving]
  - Blood pH increased [Recovering/Resolving]
  - Oxygen saturation decreased [Recovering/Resolving]
  - Heart rate increased [Recovering/Resolving]
  - Respiratory failure [Recovering/Resolving]
  - Venous thrombosis limb [Unknown]
  - Pulmonary embolism [Unknown]
  - Respiratory depression [Recovering/Resolving]

NARRATIVE: CASE EVENT DATE: 20211208
